FAERS Safety Report 17876649 (Version 1)
Quarter: 2020Q2

REPORT INFORMATION
  Report Type: Spontaneous
  Country: DE (occurrence: DE)
  Receive Date: 20200609
  Receipt Date: 20200609
  Transmission Date: 20200714
  Serious: Yes (Death, Other)
  Sender: FDA-Public Use
  Company Number: DE-BRACCO-2020DE02217

PATIENT
  Age: 68 Year
  Sex: Male

DRUGS (14)
  1. HEPARIN [Concomitant]
     Active Substance: HEPARIN SODIUM
     Dosage: 5000 IU, DURING PROCEDURE AT 01:20
     Route: 042
     Dates: start: 20200428
  2. HEPARIN [Concomitant]
     Active Substance: HEPARIN SODIUM
     Dosage: 2500 IU, DURING PROCEDURE AT 01:20
     Route: 042
     Dates: start: 20200428
  3. HEPARIN [Concomitant]
     Active Substance: HEPARIN SODIUM
     Dosage: 5000 IU, DURING PROCEDURE AT 02:20
     Route: 042
     Dates: start: 20200428
  4. ASPIRIN. [Concomitant]
     Active Substance: ASPIRIN
     Dosage: UNK
     Dates: start: 20200428
  5. MORPHIN                            /00036303/ [Concomitant]
     Active Substance: MORPHINE
     Dosage: 5 MG
     Route: 042
     Dates: start: 20200428
  6. AGGRASTAT [Concomitant]
     Active Substance: TIROFIBAN HYDROCHLORIDE
     Dosage: 9.4 ML + 3.4ML/H IN THE PERFUSER
     Route: 040
     Dates: start: 20200428
  7. NITRO                              /00003201/ [Concomitant]
     Active Substance: NITROGLYCERIN
     Indication: PROPHYLAXIS
     Dosage: 0.6 MG
     Route: 013
     Dates: start: 20200428
  8. SOLUTRAST 300 [Suspect]
     Active Substance: IOPAMIDOL
     Indication: PERCUTANEOUS CORONARY INTERVENTION
     Dosage: 160 ML, SINGLE, 01:20 TO 02:00
     Route: 013
     Dates: start: 20200428, end: 20200428
  9. LASIX [Concomitant]
     Active Substance: FUROSEMIDE
     Route: 042
     Dates: start: 20200428
  10. ACTILYSE [Concomitant]
     Active Substance: ALTEPLASE
     Dosage: 60 MG
     Dates: start: 20200428
  11. PRASUGREL. [Concomitant]
     Active Substance: PRASUGREL
     Dosage: 60 MG
     Route: 048
     Dates: start: 20200428
  12. SOLUTRAST 300 [Suspect]
     Active Substance: IOPAMIDOL
     Indication: PERCUTANEOUS CORONARY INTERVENTION
     Dosage: 500 ML, SINGLE, 09:59 TO 14:10
     Route: 013
     Dates: start: 20200428, end: 20200428
  13. RINGERLOESUNG [Concomitant]
     Dosage: 500 ML
     Route: 042
     Dates: start: 20200428
  14. PRASUGREL. [Concomitant]
     Active Substance: PRASUGREL
     Dosage: UNK

REACTIONS (4)
  - Catheter site thrombosis [Unknown]
  - Cardiac procedure complication [Unknown]
  - Vascular stent thrombosis [Unknown]
  - Cardiogenic shock [Fatal]

NARRATIVE: CASE EVENT DATE: 20200428
